FAERS Safety Report 24246879 (Version 4)
Quarter: 2024Q4

REPORT INFORMATION
  Report Type: Spontaneous
  Country: FR (occurrence: FR)
  Receive Date: 20240826
  Receipt Date: 20241108
  Transmission Date: 20250114
  Serious: Yes (Hospitalization, Other)
  Sender: AUROBINDO
  Company Number: FR-TEVA-VS-3230639

PATIENT
  Age: 38 Year
  Sex: Male

DRUGS (19)
  1. AMOXICILLIN [Suspect]
     Active Substance: AMOXICILLIN
     Indication: Mycoplasma infection
     Dosage: UNK
     Route: 065
     Dates: start: 20230801
  2. DOXYCYCLINE HYCLATE [Suspect]
     Active Substance: DOXYCYCLINE HYCLATE
     Indication: Mycoplasma infection
     Dosage: 1 DOSAGE FORM, TWO TIMES A DAY (1 TABLET IN THE MORNING AND IN THE EVENING FOR 7 DAYS)
     Route: 065
     Dates: start: 20230912
  3. DOXYCYCLINE HYCLATE [Suspect]
     Active Substance: DOXYCYCLINE HYCLATE
     Indication: Peritonitis
  4. DOXYCYCLINE [Suspect]
     Active Substance: DOXYCYCLINE
     Indication: Mycoplasma infection
     Dosage: UNK
     Route: 065
     Dates: start: 20230920, end: 20230925
  5. ECONAZOLE [Suspect]
     Active Substance: ECONAZOLE
     Indication: Penile erythema
     Dosage: UNK
     Route: 065
     Dates: start: 20230921
  6. ECONAZOLE [Suspect]
     Active Substance: ECONAZOLE
     Indication: Penile pain
  7. ECONAZOLE [Suspect]
     Active Substance: ECONAZOLE
     Indication: Penile swelling
  8. MOXIFLOXACIN HYDROCHLORIDE [Suspect]
     Active Substance: MOXIFLOXACIN HYDROCHLORIDE
     Indication: Mycoplasma infection
     Dosage: 400 MILLIGRAM, ONCE A DAY (1 TABLET PER DAY FOR 7 DAYS)
     Route: 065
     Dates: start: 20230912
  9. MOXIFLOXACIN HYDROCHLORIDE [Suspect]
     Active Substance: MOXIFLOXACIN HYDROCHLORIDE
     Dosage: 1 DOSAGE FORM, ONCE A DAY(1 TABLET PER DAY FOR 7 DAYS)
     Route: 065
     Dates: start: 20230920
  10. MOXIFLOXACIN [Suspect]
     Active Substance: MOXIFLOXACIN
     Indication: Product used for unknown indication
     Dosage: UNK
     Route: 065
     Dates: start: 20230920
  11. AZITHROMYCIN [Concomitant]
     Active Substance: AZITHROMYCIN
     Indication: Paraesthesia
     Dosage: UNK
     Route: 065
  12. AZITHROMYCIN [Concomitant]
     Active Substance: AZITHROMYCIN
     Indication: Peritonitis
  13. CEFTRIAXONE [Concomitant]
     Active Substance: CEFTRIAXONE
     Indication: Paraesthesia
     Dosage: UNK
     Route: 065
     Dates: start: 20230723
  14. CHOLECALCIFEROL [Concomitant]
     Active Substance: CHOLECALCIFEROL
     Indication: Product used for unknown indication
     Dosage: UNK,AT THE DOSAGE OF 1 VIAL EVERY 3 MONTHS
     Route: 065
  15. EMTRICITABINE\TENOFOVIR DISOPROXIL [Concomitant]
     Active Substance: EMTRICITABINE\TENOFOVIR DISOPROXIL
     Indication: Product used for unknown indication
     Dosage: UNK, ONCE A DAY
     Route: 065
  16. DESLORATADINE [Concomitant]
     Active Substance: DESLORATADINE
     Indication: Product used for unknown indication
     Dosage: UNK
     Route: 065
  17. MUPIROCIN [Concomitant]
     Active Substance: MUPIROCIN
     Indication: Product used for unknown indication
     Dosage: UNK
     Route: 065
  18. Dermoval [Concomitant]
     Indication: Product used for unknown indication
     Dosage: UNK
     Route: 065
  19. CICAPLAST [Concomitant]
     Indication: Product used for unknown indication
     Dosage: UNK
     Route: 065

REACTIONS (10)
  - Penile erythema [Recovering/Resolving]
  - Phimosis [Recovering/Resolving]
  - Penile blister [Recovering/Resolving]
  - Penile swelling [Recovering/Resolving]
  - Penile oedema [Recovering/Resolving]
  - Penile pain [Recovering/Resolving]
  - Pruritus genital [Recovering/Resolving]
  - Balanoposthitis [Recovering/Resolving]
  - Fixed eruption [Recovering/Resolving]
  - Drug ineffective [Unknown]

NARRATIVE: CASE EVENT DATE: 20230101
